FAERS Safety Report 4367040-2 (Version None)
Quarter: 2004Q2

REPORT INFORMATION
  Report Type: 
  Country: None (occurrence: None)
  Receive Date: 20040527
  Receipt Date: 20040527
  Transmission Date: 20050107
  Serious: Yes (Other)
  Sender: FDA-Public Use
  Company Number: None

PATIENT
  Sex: Female
  Weight: 41.0052 kg

DRUGS (3)
  1. CYTOXAN [Suspect]
     Indication: BREAST CANCER
     Dosage: 100 MG/M2 QD X 14 D Q 28 D X 6
     Dates: start: 19910709, end: 19911201
  2. METHOTREXATE [Suspect]
     Indication: BREAST CANCER
     Dosage: 40 MG/M2 IV Q28 D X 6
     Route: 042
     Dates: start: 19910709, end: 19911201
  3. FLUOROURACIL [Suspect]
     Indication: BREAST CANCER
     Dosage: 600 MG /M2 IV D1-8 Q28 X 6
     Route: 042
     Dates: start: 19910709, end: 19911201

REACTIONS (3)
  - NEOPLASM RECURRENCE [None]
  - SKIN CANCER [None]
  - SQUAMOUS CELL CARCINOMA [None]
